FAERS Safety Report 15731411 (Version 1)
Quarter: 2018Q4

REPORT INFORMATION
  Report Type: Spontaneous
  Country: FR (occurrence: FR)
  Receive Date: 20181217
  Receipt Date: 20181217
  Transmission Date: 20190205
  Serious: Yes (Other)
  Sender: FDA-Public Use
  Company Number: FR-MYLANLABS-2018M1092967

PATIENT
  Age: 37 Year
  Sex: Female
  Weight: 63 kg

DRUGS (1)
  1. LEVOFLOXACINE MYLAN 500 MG, COMPRIM? PELLICUL? S?CABLE [Suspect]
     Active Substance: LEVOFLOXACIN
     Indication: BRONCHITIS
     Route: 048
     Dates: start: 20171122, end: 20171201

REACTIONS (12)
  - Panic attack [Not Recovered/Not Resolved]
  - Blood pressure increased [Not Recovered/Not Resolved]
  - Depression [Not Recovered/Not Resolved]
  - Confusional state [Not Recovered/Not Resolved]
  - Diarrhoea [Recovered/Resolved]
  - Diffuse alopecia [Not Recovered/Not Resolved]
  - Arthralgia [Not Recovered/Not Resolved]
  - Muscular weakness [Not Recovered/Not Resolved]
  - Palpitations [Not Recovered/Not Resolved]
  - Myalgia [Not Recovered/Not Resolved]
  - Agitation [Not Recovered/Not Resolved]
  - Tendonitis [Not Recovered/Not Resolved]

NARRATIVE: CASE EVENT DATE: 20171124
